FAERS Safety Report 4577715-8 (Version None)
Quarter: 2005Q1

REPORT INFORMATION
  Report Type: 
  Country: None (occurrence: None)
  Receive Date: 20050127
  Receipt Date: 20040827
  Transmission Date: 20050727
  Serious: No
  Sender: FDA-Public Use
  Company Number: USA040876670

PATIENT
  Age: 6 Year
  Sex: Male
  Weight: 19 kg

DRUGS (3)
  1. STRATTERA [Suspect]
     Indication: ATTENTION DEFICIT/HYPERACTIVITY DISORDER
     Dosage: 25 MG/L DAY
     Dates: start: 20040715
  2. RISPERDAL [Concomitant]
  3. CLONIDINE [Concomitant]

REACTIONS (4)
  - DECREASED APPETITE [None]
  - PSYCHOMOTOR HYPERACTIVITY [None]
  - STOMACH DISCOMFORT [None]
  - VOMITING [None]
